FAERS Safety Report 22228791 (Version 1)
Quarter: 2023Q2

REPORT INFORMATION
  Report Type: Spontaneous
  Country: US (occurrence: None)
  Receive Date: 20230419
  Receipt Date: 20230419
  Transmission Date: 20230721
  Serious: Yes (Other)
  Sender: FDA-Public Use
  Company Number: 2023A087948

PATIENT
  Sex: Female

DRUGS (4)
  1. ATENOLOL [Suspect]
     Active Substance: ATENOLOL
  2. METOPROLOL [Suspect]
     Active Substance: METOPROLOL
  3. ZOLMITRIPTAN [Suspect]
     Active Substance: ZOLMITRIPTAN
  4. NURTEC ODT [Suspect]
     Active Substance: RIMEGEPANT SULFATE
     Route: 048

REACTIONS (15)
  - Anaphylactic reaction [Unknown]
  - Pain [Unknown]
  - Photosensitivity reaction [Unknown]
  - Pain in extremity [Unknown]
  - Migraine [Unknown]
  - Musculoskeletal stiffness [Unknown]
  - Hyperacusis [Unknown]
  - Drug intolerance [Unknown]
  - Dizziness [Unknown]
  - Asthenia [Unknown]
  - Syncope [Unknown]
  - Nausea [Unknown]
  - Headache [Unknown]
  - Vomiting [Unknown]
  - Drug ineffective [Unknown]
